FAERS Safety Report 20236050 (Version 1)
Quarter: 2021Q4

REPORT INFORMATION
  Report Type: Spontaneous
  Country: US (occurrence: US)
  Receive Date: 20211228
  Receipt Date: 20211228
  Transmission Date: 20220303
  Serious: No
  Sender: FDA-Public Use
  Company Number: US-RISINGPHARMA-US-2021RISSPO00003

PATIENT
  Age: 3 Year
  Sex: Female

DRUGS (2)
  1. NADOLOL [Suspect]
     Active Substance: NADOLOL
     Indication: Heart rate irregular
     Route: 065
  2. NADOLOL [Suspect]
     Active Substance: NADOLOL
     Indication: Atrial fibrillation

REACTIONS (1)
  - Product use in unapproved indication [Unknown]
